FAERS Safety Report 4586823-7 (Version None)
Quarter: 2005Q1

REPORT INFORMATION
  Report Type: 
  Country: None (occurrence: None)
  Receive Date: 20050217
  Receipt Date: 20050217
  Transmission Date: 20050727
  Serious: Yes (Life-Threatening, Hospitalization)
  Sender: FDA-Public Use
  Company Number: None

PATIENT
  Age: 89 Year
  Sex: Male

DRUGS (10)
  1. PENTAMIDINE [Suspect]
     Indication: DRUG HYPERSENSITIVITY
     Dosage: 300 MG   MONTHLY   RESPIRATOR
     Dates: start: 20040812, end: 20040812
  2. PENTAMIDINE [Suspect]
     Indication: INFECTION PROPHYLAXIS
     Dosage: 300 MG   MONTHLY   RESPIRATOR
     Dates: start: 20040812, end: 20040812
  3. ASPIRIN [Concomitant]
  4. BUDESONIDE [Concomitant]
  5. HYDROCHLOROTHIAZIDE [Concomitant]
  6. IPRATROPIUM BROMIDE [Concomitant]
  7. LISINOPRIL [Concomitant]
  8. NAPROXEN [Concomitant]
  9. PANTOPRAZOLE [Concomitant]
  10. PREDNISONE [Concomitant]

REACTIONS (3)
  - CARDIO-RESPIRATORY ARREST [None]
  - DYSPNOEA [None]
  - ELECTROMECHANICAL DISSOCIATION [None]
